FAERS Safety Report 9476949 (Version 3)
Quarter: 2013Q3

REPORT INFORMATION
  Report Type: Spontaneous
  Country: US (occurrence: US)
  Receive Date: 20130826
  Receipt Date: 20130903
  Transmission Date: 20140515
  Serious: Yes (Other)
  Sender: FDA-Public Use
  Company Number: US-BIOMARINP-003244

PATIENT
  Age: 29 Year
  Sex: Female
  Weight: 111.5 kg

DRUGS (2)
  1. KUVAN [Suspect]
     Indication: PHENYLKETONURIA
     Dosage: 2100 MG, UNK
     Route: 048
     Dates: start: 2010
  2. PRENATAL VITAMINS                  /01549301/ [Concomitant]
     Indication: PRENATAL CARE

REACTIONS (3)
  - Prolonged labour [Recovered/Resolved]
  - Exposure during pregnancy [Recovered/Resolved]
  - Amniotic cavity infection [Unknown]
